FAERS Safety Report 18965361 (Version 1)
Quarter: 2021Q1

REPORT INFORMATION
  Report Type: Report from Study
  Country: FR (occurrence: FR)
  Receive Date: 20210304
  Receipt Date: 20210304
  Transmission Date: 20210420
  Serious: Yes (Other)
  Sender: FDA-Public Use
  Company Number: FR-ROCHE-2653135

PATIENT
  Age: 46 Year
  Sex: Male

DRUGS (13)
  1. LEVONOX [Concomitant]
     Active Substance: ENOXAPARIN
  2. PARACETAMOL [Concomitant]
     Active Substance: ACETAMINOPHEN
     Indication: PYREXIA
     Route: 048
     Dates: start: 20200402, end: 20200414
  3. ACTRAPID [Concomitant]
     Active Substance: INSULIN HUMAN
  4. NICARDIPINE [Concomitant]
     Active Substance: NICARDIPINE
  5. EUPRESSYL [Concomitant]
     Active Substance: URAPIDIL
  6. NEBIVOLOL. [Concomitant]
     Active Substance: NEBIVOLOL
  7. DEXDOR [Concomitant]
     Active Substance: DEXMEDETOMIDINE HYDROCHLORIDE
  8. VALSARTAN. [Concomitant]
     Active Substance: VALSARTAN
  9. LACTULOSE. [Concomitant]
     Active Substance: LACTULOSE
  10. LASILIX [Concomitant]
     Active Substance: FUROSEMIDE
  11. TOCILIZUMAB. [Suspect]
     Active Substance: TOCILIZUMAB
     Route: 042
     Dates: start: 20200404, end: 20200404
  12. TOCILIZUMAB. [Suspect]
     Active Substance: TOCILIZUMAB
     Indication: CORONAVIRUS INFECTION
     Route: 042
     Dates: start: 20200402, end: 20200402
  13. DIAZEPAM. [Concomitant]
     Active Substance: DIAZEPAM

REACTIONS (2)
  - Cholestasis [Recovered/Resolved]
  - Hepatocellular injury [Recovered/Resolved]

NARRATIVE: CASE EVENT DATE: 20200407
